FAERS Safety Report 23345626 (Version 2)
Quarter: 2024Q1

REPORT INFORMATION
  Report Type: Spontaneous
  Country: US (occurrence: US)
  Receive Date: 20231228
  Receipt Date: 20240113
  Transmission Date: 20240410
  Serious: Yes (Hospitalization, Other)
  Sender: FDA-Public Use
  Company Number: US-SCIEGENP-2023SCLIT00814

PATIENT
  Age: 15 Year
  Sex: Male

DRUGS (12)
  1. FLUOXETINE [Suspect]
     Active Substance: FLUOXETINE HYDROCHLORIDE
     Indication: Schizophrenia
     Dosage: 40 MG IN THE MORNING, 20 MG IN THE EVENING
     Route: 065
  2. FLUOXETINE [Suspect]
     Active Substance: FLUOXETINE HYDROCHLORIDE
     Indication: Schizophrenia
  3. FLUOXETINE [Suspect]
     Active Substance: FLUOXETINE HYDROCHLORIDE
     Dosage: ON DAY 5
     Route: 065
  4. CLOZAPINE [Suspect]
     Active Substance: CLOZAPINE
     Indication: Schizophrenia
     Dosage: 200 MG IN THE MORNING, 100 MG AFTERNOON AND 250 MG IN THE EVENING
     Route: 065
  5. CLOZAPINE [Suspect]
     Active Substance: CLOZAPINE
     Dosage: IN THE MORNING
     Route: 065
  6. CLOZAPINE [Suspect]
     Active Substance: CLOZAPINE
     Dosage: 100MG IN MORNING AND 200MG IN THE EVENING
     Route: 065
  7. CLOZAPINE [Suspect]
     Active Substance: CLOZAPINE
     Dosage: 100MG IN MORNING AND 50MG IN THE EVENING
     Route: 065
  8. CLOZAPINE [Suspect]
     Active Substance: CLOZAPINE
     Dosage: ON DAY 5
     Route: 065
  9. CLOZAPINE [Suspect]
     Active Substance: CLOZAPINE
     Dosage: ON DAY 6
     Route: 065
  10. CLOZAPINE [Suspect]
     Active Substance: CLOZAPINE
     Dosage: IN THE EVENING
     Route: 065
  11. ZIPRASIDONE [Suspect]
     Active Substance: ZIPRASIDONE
     Indication: Schizophrenia
     Route: 065
  12. ZIPRASIDONE [Suspect]
     Active Substance: ZIPRASIDONE
     Dosage: REDUCED TO 20MG TWICE A DAY ON DAY 1
     Route: 065

REACTIONS (3)
  - Drug interaction [Unknown]
  - Malignant catatonia [Recovered/Resolved]
  - Delirium [Recovered/Resolved]
